FAERS Safety Report 4367024-4 (Version None)
Quarter: 2004Q2

REPORT INFORMATION
  Report Type: 
  Country: None (occurrence: None)
  Receive Date: 20040527
  Receipt Date: 20040527
  Transmission Date: 20050107
  Serious: Yes (Hospitalization)
  Sender: FDA-Public Use
  Company Number: None

PATIENT
  Age: 56 Year
  Sex: Male
  Weight: 82.5547 kg

DRUGS (4)
  1. GALANTAMINE CR [Suspect]
     Indication: COGNITIVE DISORDER
     Dosage: 16 MG PO QD
     Route: 048
     Dates: start: 20040313, end: 20040504
  2. LITHIUM CARBONATE [Concomitant]
  3. ZONISAMIDE [Concomitant]
  4. SEROQUEL [Concomitant]

REACTIONS (4)
  - ABNORMAL BEHAVIOUR [None]
  - CATATONIA [None]
  - LACK OF SPONTANEOUS SPEECH [None]
  - MANIA [None]
